FAERS Safety Report 13192834 (Version 3)
Quarter: 2017Q3

REPORT INFORMATION
  Report Type: Spontaneous
  Country: KR (occurrence: KR)
  Receive Date: 20170207
  Receipt Date: 20170727
  Transmission Date: 20171127
  Serious: Yes (Other)
  Sender: FDA-Public Use
  Company Number: KR-009507513-1702KOR001806

PATIENT
  Age: 69 Year
  Sex: Male
  Weight: 62 kg

DRUGS (14)
  1. EMEND (FOSAPREPITANT DIMEGLUMINE) [Suspect]
     Active Substance: FOSAPREPITANT DIMEGLUMINE
     Dosage: 150 MG, ONCE
     Route: 042
     Dates: start: 20160621, end: 20160621
  2. DEXAMETHASONE DAEWOO [Concomitant]
     Indication: PROPHYLAXIS OF NAUSEA AND VOMITING
     Dosage: 0.5 MG, ONCE
     Route: 048
     Dates: start: 20160505, end: 20160505
  3. EMEND (FOSAPREPITANT DIMEGLUMINE) [Suspect]
     Active Substance: FOSAPREPITANT DIMEGLUMINE
     Dosage: 150 MG, ONCE
     Route: 042
     Dates: start: 20160719, end: 20160719
  4. EMEND (FOSAPREPITANT DIMEGLUMINE) [Suspect]
     Active Substance: FOSAPREPITANT DIMEGLUMINE
     Dosage: 150 MG, ONCE
     Route: 042
     Dates: start: 20160524, end: 20160524
  5. LASIX [Concomitant]
     Active Substance: FUROSEMIDE
     Indication: PROPHYLAXIS
     Dosage: 20 MG, ONCE,  20 MG/2ML
     Route: 042
     Dates: start: 20160503, end: 20160503
  6. MAGNESIN (MAGNESIUM SULFATE) [Concomitant]
     Indication: PROPHYLAXIS
     Dosage: 10 ML, BID
     Route: 042
     Dates: start: 20160503, end: 20160503
  7. EMEND (FOSAPREPITANT DIMEGLUMINE) [Suspect]
     Active Substance: FOSAPREPITANT DIMEGLUMINE
     Indication: PROPHYLAXIS OF NAUSEA AND VOMITING
     Dosage: 150 MG, ONCE
     Route: 042
     Dates: start: 20160503, end: 20160503
  8. EPS [Concomitant]
     Indication: LUNG NEOPLASM MALIGNANT
     Dosage: 127 MG, QD, CYCLE 1, STRENGTH: 100MG/5ML
     Route: 042
     Dates: start: 20160503, end: 20160505
  9. EPS [Concomitant]
     Dosage: 127 MG, QD, CYCLE 2, STRENGTH: 100MG/5ML
     Route: 042
     Dates: start: 20160524, end: 20160526
  10. EPS [Concomitant]
     Dosage: 127 MG, QD, CYCLE 3, STRENGTH: 100MG/5ML
     Route: 042
     Dates: start: 20160621, end: 20160623
  11. MAGMIL [Concomitant]
     Active Substance: MAGNESIUM HYDROXIDE
     Indication: CONSTIPATION PROPHYLAXIS
     Dosage: 1 TABLET, TID
     Route: 048
     Dates: start: 20160505
  12. DAEYOO DEXAMETHASONE [Concomitant]
     Indication: PROPHYLAXIS OF NAUSEA AND VOMITING
     Dosage: 5 MG, QD, STRENGHT 5MG/ML
     Route: 042
     Dates: start: 20160503, end: 20160505
  13. ALOXI [Concomitant]
     Active Substance: PALONOSETRON HYDROCHLORIDE
     Indication: PROPHYLAXIS OF NAUSEA AND VOMITING
     Dosage: 0.25 MG, ONCE
     Route: 042
     Dates: start: 20160503, end: 20160503
  14. KCL HUONS [Concomitant]
     Indication: PROPHYLAXIS
     Dosage: 10 ML, BID
     Route: 042
     Dates: start: 20160503, end: 20160503

REACTIONS (4)
  - Insomnia [Recovered/Resolved]
  - Pancytopenia [Recovered/Resolved]
  - Dizziness [Recovered/Resolved]
  - Cough [Recovered/Resolved]

NARRATIVE: CASE EVENT DATE: 20160511
